FAERS Safety Report 18579926 (Version 1)
Quarter: 2020Q4

REPORT INFORMATION
  Report Type: Spontaneous
  Country: GB (occurrence: GB)
  Receive Date: 20201204
  Receipt Date: 20201204
  Transmission Date: 20210114
  Serious: Yes (Other)
  Sender: FDA-Public Use
  Company Number: GB-TEVA-2020-GB-1854700

PATIENT
  Age: 29 Year
  Sex: Female
  Weight: 58 kg

DRUGS (4)
  1. VANCOMYCIN [Suspect]
     Active Substance: VANCOMYCIN
     Indication: PROLONGED RUPTURE OF MEMBRANES
     Dosage: 1 GRAM
     Route: 042
     Dates: start: 20201107, end: 20201107
  2. ERYTHROMYCIN. [Concomitant]
     Active Substance: ERYTHROMYCIN
  3. PROSTIN E2 [Concomitant]
     Active Substance: DINOPROSTONE
  4. BETAMETHASONE. [Concomitant]
     Active Substance: BETAMETHASONE

REACTIONS (6)
  - Ocular hyperaemia [Recovered/Resolved]
  - Rash erythematous [Recovered/Resolved]
  - Maternal exposure during pregnancy [Unknown]
  - Swelling face [Recovered/Resolved]
  - Pruritus [Recovered/Resolved]
  - Paraesthesia oral [Recovered/Resolved]

NARRATIVE: CASE EVENT DATE: 20201007
